FAERS Safety Report 6851925-9 (Version None)
Quarter: 2010Q3

REPORT INFORMATION
  Report Type: 
  Country: None (occurrence: None)
  Receive Date: 20100717
  Receipt Date: 20071103
  Transmission Date: 20110219
  Serious: No
  Sender: FDA-Public Use
  Company Number: US-PFIZER INC-2007092385

PATIENT
  Sex: Male
  Weight: 68 kg

DRUGS (3)
  1. CHANTIX [Suspect]
     Indication: SMOKING CESSATION THERAPY
     Dates: start: 20070901
  2. ACETYLSALICYLIC ACID [Concomitant]
  3. FISH OIL [Concomitant]

REACTIONS (2)
  - LETHARGY [None]
  - NAUSEA [None]
